FAERS Safety Report 5983017-5 (Version None)
Quarter: 2008Q4

REPORT INFORMATION
  Report Type: 
  Country: None (occurrence: None)
  Receive Date: 20081208
  Receipt Date: 20080717
  Transmission Date: 20090506
  Serious: No
  Sender: FDA-Public Use
  Company Number: US-AMGEN-KDL293707

PATIENT
  Sex: Male
  Weight: 120.8 kg

DRUGS (9)
  1. ENBREL [Suspect]
     Indication: RHEUMATOID ARTHRITIS
     Route: 058
     Dates: start: 20080612
  2. ARAVA [Concomitant]
     Route: 048
     Dates: start: 20080401
  3. PREDNISONE TAB [Concomitant]
  4. LITHIUM [Concomitant]
  5. KLONOPIN [Concomitant]
  6. ADVAIR HFA [Concomitant]
  7. ALBUTEROL [Concomitant]
  8. UNKNOWN [Concomitant]
  9. MOTRIN [Concomitant]

REACTIONS (2)
  - ASTHMA [None]
  - DRUG INEFFECTIVE [None]
